FAERS Safety Report 9000981 (Version 2)
Quarter: 2013Q1

REPORT INFORMATION
  Report Type: Report from Study
  Country: CA (occurrence: CA)
  Receive Date: 20130107
  Receipt Date: 20130109
  Transmission Date: 20140127
  Serious: Yes (Death)
  Sender: FDA-Public Use
  Company Number: PHHY2013CA001267

PATIENT
  Sex: Male

DRUGS (8)
  1. CLOZARIL [Suspect]
     Indication: SCHIZOPHRENIA
     Dosage: UNK
     Route: 048
     Dates: start: 20020205
  2. CLOZARIL [Suspect]
     Dosage: 300 MG, UNK
     Route: 048
  3. CLONAZEPAM [Concomitant]
     Dosage: 0.5 MG, TID
  4. DIVALPROEX [Concomitant]
     Dosage: 500 MG, BID
     Route: 048
  5. DOCUSATE [Concomitant]
     Dosage: 100 MG, BID
     Route: 048
  6. MULTAMIN//VITAMINS NOS [Concomitant]
  7. LACTULOSE [Concomitant]
     Dosage: 20 UNK, UNK
  8. ASA [Concomitant]
     Dosage: 8 MG, UNK

REACTIONS (2)
  - Fall [Fatal]
  - Head injury [Fatal]
